FAERS Safety Report 25746489 (Version 3)
Quarter: 2025Q4

REPORT INFORMATION
  Report Type: Spontaneous
  Country: JP (occurrence: JP)
  Receive Date: 20250901
  Receipt Date: 20251029
  Transmission Date: 20260118
  Serious: Yes (Other)
  Sender: CSL BEHRING
  Company Number: JP-BEH-2025216833

PATIENT
  Age: 6 Decade
  Sex: Male

DRUGS (16)
  1. HUMAN IMMUNOGLOBULIN G [Suspect]
     Active Substance: HUMAN IMMUNOGLOBULIN G
     Indication: Epilepsy
     Route: 042
  2. LACOSAMIDE [Concomitant]
     Active Substance: LACOSAMIDE
     Dosage: UNK
  3. LACOSAMIDE [Concomitant]
     Active Substance: LACOSAMIDE
     Dosage: 400 MG
     Route: 048
  4. PERAMPANEL [Concomitant]
     Active Substance: PERAMPANEL
     Dosage: 8 MG
     Route: 048
  5. LEVETIRACETAM [Concomitant]
     Active Substance: LEVETIRACETAM
     Indication: New onset refractory status epilepticus
     Dosage: UNK
  6. LEVETIRACETAM [Concomitant]
     Active Substance: LEVETIRACETAM
     Dosage: 2500 MG
     Route: 048
  7. LAMOTRIGINE [Concomitant]
     Active Substance: LAMOTRIGINE
     Dosage: 175 MG
     Route: 048
  8. VALPROATE SODIUM [Concomitant]
     Active Substance: VALPROATE SODIUM
     Dosage: 600 MG
     Route: 048
  9. PREDNISOLONE [Concomitant]
     Active Substance: PREDNISOLONE
     Indication: New onset refractory status epilepticus
     Dosage: UNK
  10. PREDNISOLONE [Concomitant]
     Active Substance: PREDNISOLONE
     Dosage: 25 MG
     Route: 048
  11. PREDNISOLONE [Concomitant]
     Active Substance: PREDNISOLONE
     Dosage: 10 MG
  12. FOSPHENYTOIN [Concomitant]
     Active Substance: FOSPHENYTOIN
     Indication: New onset refractory status epilepticus
  13. FOSPHENYTOIN [Concomitant]
     Active Substance: FOSPHENYTOIN
     Indication: New onset refractory status epilepticus
  14. HUMAN IMMUNOGLOBULIN G [Concomitant]
     Active Substance: HUMAN IMMUNOGLOBULIN G
     Indication: New onset refractory status epilepticus
  15. MIDAZOLAM [Concomitant]
     Active Substance: MIDAZOLAM
  16. PROPOFOL [Concomitant]
     Active Substance: PROPOFOL

REACTIONS (15)
  - Epilepsy [Unknown]
  - Tardive dyskinesia [Unknown]
  - Loss of consciousness [Unknown]
  - Focal dyscognitive seizures [Unknown]
  - Memory impairment [Unknown]
  - Selective eating disorder [Unknown]
  - Circumstantiality [Unknown]
  - Palpitations [Unknown]
  - Nausea [Unknown]
  - Feeling cold [Unknown]
  - Fall [Unknown]
  - Tinnitus [Unknown]
  - Memory impairment [Unknown]
  - Hippocampal atrophy [Unknown]
  - Off label use [Unknown]
